FAERS Safety Report 9976954 (Version 1)
Quarter: 2014Q1

REPORT INFORMATION
  Report Type: Report from Study
  Country: US (occurrence: US)
  Receive Date: 20140306
  Receipt Date: 20140306
  Transmission Date: 20141002
  Serious: No
  Sender: FDA-Public Use
  Company Number: US-ABBVIE-13P-163-1168310-00

PATIENT
  Age: 60 Year
  Sex: Male

DRUGS (11)
  1. HUMIRA [Suspect]
     Indication: COLITIS ULCERATIVE
     Dosage: LOADING DOSE
     Dates: start: 20131024, end: 20131024
  2. HUMIRA [Suspect]
     Dosage: LOADING DOSE
     Dates: start: 20131107
  3. PREDNISONE [Concomitant]
     Indication: PRODUCT USED FOR UNKNOWN INDICATION
     Dosage: DROPS TO 20MG TOMORROW FOR 2 WEEKS, THEN 10MG FOR 2 WEEKS
  4. WELLBUTRIN [Concomitant]
     Indication: DEPRESSION
  5. CYMBALTA [Concomitant]
     Indication: DEPRESSION
  6. FLORASTOR [Concomitant]
     Indication: COLITIS ULCERATIVE
     Dosage: 3 PILLS DAILY
  7. DIAZEPAM [Concomitant]
     Indication: PRODUCT USED FOR UNKNOWN INDICATION
  8. OXYCODONE [Concomitant]
     Indication: COLITIS ULCERATIVE
     Dosage: AS NEEDED
  9. OXYCODONE [Concomitant]
     Indication: PAIN
  10. OPIATES [Concomitant]
     Indication: PRODUCT USED FOR UNKNOWN INDICATION
     Dosage: FOR YEARS
  11. UNKNOWN MEDICATION [Concomitant]
     Indication: MUSCLE SPASMS

REACTIONS (3)
  - Tremor [Unknown]
  - Nasopharyngitis [Not Recovered/Not Resolved]
  - Respiratory tract congestion [Not Recovered/Not Resolved]
